FAERS Safety Report 6369903-5 (Version None)
Quarter: 2009Q3

REPORT INFORMATION
  Report Type: 
  Country: None (occurrence: None)
  Receive Date: 20090923
  Receipt Date: 20070529
  Transmission Date: 20100115
  Serious: No
  Sender: FDA-Public Use
  Company Number: US-ASTRAZENECA-2006UW11359

PATIENT
  Age: 18892 Day
  Sex: Male
  Weight: 101.6 kg

DRUGS (15)
  1. SEROQUEL [Suspect]
     Indication: BIPOLAR DISORDER
     Dosage: 75 - 100 MG
     Route: 048
     Dates: start: 20050125
  2. KALETRA [Concomitant]
     Dosage: 33.3 - 200 MG
     Route: 048
  3. HYDROCHLOROTHIAZIDE [Concomitant]
     Route: 048
  4. ZESTRIL [Concomitant]
     Dosage: 10 - 40 MG
     Route: 048
  5. ASPIRIN [Concomitant]
     Dosage: 81 - 325 MG
     Route: 048
  6. GLIPIZIDE [Concomitant]
     Route: 048
  7. TRUVADA [Concomitant]
     Dosage: 200 - 300 MG
     Route: 048
  8. DEPAKOTE [Concomitant]
     Route: 048
  9. MARINOL [Concomitant]
     Route: 048
  10. FLEXERIL [Concomitant]
     Indication: BACK PAIN
     Route: 048
  11. AMBIEN [Concomitant]
     Indication: INSOMNIA
     Route: 048
  12. ISONIAZID [Concomitant]
     Route: 048
  13. NAPROXEN [Concomitant]
     Route: 048
  14. ULTRAM [Concomitant]
     Dosage: 50 - 400 MG
     Route: 048
  15. IBUPROFEN [Concomitant]
     Dosage: 400 - 3200 MG
     Route: 048

REACTIONS (16)
  - ANGER [None]
  - ANXIETY [None]
  - ARTHRALGIA [None]
  - DIABETES MELLITUS [None]
  - FATIGUE [None]
  - HEAT RASH [None]
  - HYPERLIPIDAEMIA [None]
  - HYPOAESTHESIA [None]
  - INSOMNIA [None]
  - JOINT EFFUSION [None]
  - NASAL CONGESTION [None]
  - NAUSEA [None]
  - PARAESTHESIA [None]
  - RECTAL HAEMORRHAGE [None]
  - TOOTH ABSCESS [None]
  - TOOTHACHE [None]
